FAERS Safety Report 12072766 (Version 1)
Quarter: 2016Q1

REPORT INFORMATION
  Report Type: Spontaneous
  Country: US (occurrence: US)
  Receive Date: 20160212
  Receipt Date: 20160212
  Transmission Date: 20160526
  Serious: No
  Sender: FDA-Public Use
  Company Number: US-BAYER-2016-028210

PATIENT
  Age: 66 Year
  Sex: Male
  Weight: 95.23 kg

DRUGS (2)
  1. NISTATIN [Concomitant]
     Active Substance: NYSTATIN
  2. CLARITIN [Suspect]
     Active Substance: LORATADINE
     Indication: RASH
     Route: 048

REACTIONS (1)
  - Circumstance or information capable of leading to medication error [Unknown]
